FAERS Safety Report 5568157-7 (Version None)
Quarter: 2007Q4

REPORT INFORMATION
  Report Type: 
  Country: None (occurrence: None)
  Receive Date: 20071220
  Receipt Date: 20071210
  Transmission Date: 20080405
  Serious: Yes (Death)
  Sender: FDA-Public Use
  Company Number: US-NOVOPROD-270113

PATIENT
  Sex: Female
  Weight: 65.5 kg

DRUGS (5)
  1. NOVOLOG MIX 70/30 [Suspect]
     Indication: TYPE 2 DIABETES MELLITUS
     Dosage: 22 IU, BID
  2. CARDYL [Concomitant]
  3. ASPIRIN [Concomitant]
  4. DAFLON                             /00426001/ [Concomitant]
  5. APROVEL [Concomitant]

REACTIONS (1)
  - FEELING ABNORMAL [None]
